FAERS Safety Report 8374150-1 (Version None)
Quarter: 2012Q2

REPORT INFORMATION
  Report Type: 
  Country: None (occurrence: None)
  Receive Date: 20120521
  Receipt Date: 20120515
  Transmission Date: 20120825
  Serious: Yes (Other)
  Sender: FDA-Public Use
  Company Number: US-GLAXOSMITHKLINE-A0977685A

PATIENT
  Age: 56 Year
  Sex: Male

DRUGS (3)
  1. NO CONCURRENT MEDICATION [Concomitant]
  2. VESICARE [Suspect]
     Indication: MICTURITION DISORDER
  3. AVODART [Suspect]
     Indication: BENIGN PROSTATIC HYPERPLASIA
     Dosage: 1CAP PER DAY
     Route: 048
     Dates: end: 20120512

REACTIONS (4)
  - SUICIDAL IDEATION [None]
  - DRUG INTERACTION [None]
  - DRUG INEFFECTIVE [None]
  - DEPRESSION [None]
